APPROVED DRUG PRODUCT: NEOTRIZINE
Active Ingredient: TRISULFAPYRIMIDINES (SULFADIAZINE;SULFAMERAZINE;SULFAMETHAZINE)
Strength: 167MG/5ML;167MG/5ML;167MG/5ML
Dosage Form/Route: SUSPENSION;ORAL
Application: N006317 | Product #012
Applicant: ELI LILLY AND CO
Approved: Approved Prior to Jan 1, 1982 | RLD: No | RS: No | Type: DISCN